FAERS Safety Report 8017800-1 (Version None)
Quarter: 2012Q1

REPORT INFORMATION
  Report Type: 
  Country: None (occurrence: None)
  Receive Date: 20120103
  Receipt Date: 20111228
  Transmission Date: 20120608
  Serious: No
  Sender: FDA-Public Use
  Company Number: US-PFIZER INC-2011315950

PATIENT
  Age: 55 Year
  Sex: Female
  Weight: 56.689 kg

DRUGS (6)
  1. PRISTIQ [Suspect]
     Indication: ANXIETY
     Dosage: 50 MG, DAILY
     Route: 048
     Dates: start: 20111226
  2. CALCIUM WITH VITAMIN D [Concomitant]
     Dosage: UNK
  3. LIPITOR [Concomitant]
     Indication: BLOOD CHOLESTEROL INCREASED
     Dosage: 10 MG, DAILY
     Route: 048
  4. LEVOTHYROXINE [Concomitant]
     Indication: THYROID DISORDER
     Dosage: 0.25 MG, DAILY
  5. BENADRYL [Suspect]
     Indication: SLEEP DISORDER
     Dosage: UNK
     Dates: start: 20111226
  6. PRISTIQ [Suspect]
     Indication: DEPRESSION
     Dosage: 50 MG, ALTERNATE DAY
     Route: 048
     Dates: start: 20111201

REACTIONS (5)
  - DRUG INEFFECTIVE [None]
  - NAUSEA [None]
  - INSOMNIA [None]
  - FEELING ABNORMAL [None]
  - INAPPROPRIATE SCHEDULE OF DRUG ADMINISTRATION [None]
